FAERS Safety Report 10379376 (Version 1)
Quarter: 2014Q3

REPORT INFORMATION
  Report Type: Spontaneous
  Country: US (occurrence: None)
  Receive Date: 20140808
  Receipt Date: 20140808
  Transmission Date: 20150326
  Serious: Yes (Hospitalization, Other)
  Sender: FDA-Public Use
  Company Number: AUR-APL-2014-08282

PATIENT
  Age: 58 Year
  Sex: Male

DRUGS (8)
  1. DOXYCYCLINE CALCIUM [Suspect]
     Active Substance: DOXYCYCLINE CALCIUM
     Indication: PRODUCT USED FOR UNKNOWN INDICATION
  2. ATARAX [Suspect]
     Active Substance: HYDROXYZINE\HYDROXYZINE HYDROCHLORIDE
     Indication: PRURITUS
  3. LASIX [Suspect]
     Active Substance: FUROSEMIDE
     Indication: HYPERTENSION
  4. LIORESAL [Suspect]
     Active Substance: BACLOFEN
     Indication: PRODUCT USED FOR UNKNOWN INDICATION
     Dosage: STRENGTH: 500UG/ML
     Route: 037
     Dates: start: 20140618
  5. CEFPODOXIME [Suspect]
     Active Substance: CEFPODOXIME
     Indication: PRODUCT USED FOR UNKNOWN INDICATION
  6. BACLOFEN. [Suspect]
     Active Substance: BACLOFEN
     Indication: MUSCLE SPASTICITY
     Dosage: STRENGTH: 1000 UG/ML
     Route: 037
     Dates: start: 20140618
  7. COPAXONE [Suspect]
     Active Substance: GLATIRAMER ACETATE
     Indication: MULTIPLE SCLEROSIS
  8. LEVAQUIN [Suspect]
     Active Substance: LEVOFLOXACIN
     Indication: PRODUCT USED FOR UNKNOWN INDICATION

REACTIONS (23)
  - Condition aggravated [None]
  - Therapeutic response decreased [None]
  - Ataxia [None]
  - Pruritus [None]
  - Insomnia [None]
  - Therapeutic response increased [None]
  - Performance status decreased [None]
  - Withdrawal syndrome [None]
  - Muscle rigidity [None]
  - Urinary tract infection [None]
  - Stenotrophomonas test positive [None]
  - Bronchospasm [None]
  - Quality of life decreased [None]
  - General physical health deterioration [None]
  - No therapeutic response [None]
  - Escherichia test positive [None]
  - Hypertension [None]
  - Muscle atrophy [None]
  - Muscle spasms [None]
  - Urine odour abnormal [None]
  - Respiratory disorder [None]
  - Pain in extremity [None]
  - Abnormal behaviour [None]

NARRATIVE: CASE EVENT DATE: 201405
